FAERS Safety Report 12995802 (Version 1)
Quarter: 2016Q4

REPORT INFORMATION
  Report Type: Spontaneous
  Country: JP (occurrence: JP)
  Receive Date: 20161202
  Receipt Date: 20161202
  Transmission Date: 20170207
  Serious: Yes (Other)
  Sender: FDA-Public Use
  Company Number: JP-TEVA-715969ISR

PATIENT
  Age: 58 Year
  Sex: Male

DRUGS (10)
  1. AZATHIOPRINE. [Suspect]
     Active Substance: AZATHIOPRINE
     Route: 065
     Dates: start: 1989
  2. AZATHIOPRINE. [Suspect]
     Active Substance: AZATHIOPRINE
     Indication: LIGHT CHAIN DISEASE
     Route: 065
     Dates: start: 1989
  3. PREDNISOLONE. [Suspect]
     Active Substance: PREDNISOLONE
     Indication: LIGHT CHAIN DISEASE
     Route: 048
     Dates: start: 1989
  4. BREDININE [Concomitant]
     Indication: LIGHT CHAIN DISEASE
     Dosage: 25 MILLIGRAM DAILY;
     Route: 065
  5. PREDNISOLONE. [Suspect]
     Active Substance: PREDNISOLONE
     Dosage: A CYCLE OF 10 MG-0 MG-15 MG-0 MG/DAY
     Route: 048
     Dates: start: 1999
  6. PREDNISOLONE. [Suspect]
     Active Substance: PREDNISOLONE
     Route: 048
     Dates: start: 1996
  7. MELPHALAN [Concomitant]
     Active Substance: MELPHALAN
     Indication: LIGHT CHAIN DISEASE
     Route: 065
  8. METHYLPREDNISOLONE. [Suspect]
     Active Substance: METHYLPREDNISOLONE
     Indication: LIGHT CHAIN DISEASE
     Route: 048
     Dates: start: 1991
  9. MELPHALAN [Concomitant]
     Active Substance: MELPHALAN
     Indication: LIGHT CHAIN DISEASE
     Route: 065
     Dates: start: 1991
  10. MELPHALAN [Concomitant]
     Active Substance: MELPHALAN
     Indication: LIGHT CHAIN DISEASE
     Route: 065
     Dates: start: 1995, end: 2001

REACTIONS (4)
  - Renal tubular atrophy [Unknown]
  - Glomerulosclerosis [Unknown]
  - Kidney fibrosis [Unknown]
  - Anaemia [Unknown]
